FAERS Safety Report 6183829-1 (Version None)
Quarter: 2009Q2

REPORT INFORMATION
  Report Type: 
  Country: None (occurrence: None)
  Receive Date: 20090508
  Receipt Date: 20090428
  Transmission Date: 20091009
  Serious: No
  Sender: FDA-Public Use
  Company Number: US-AMGEN-QUU338648

PATIENT
  Sex: Female
  Weight: 107.6 kg

DRUGS (1)
  1. ENBREL [Suspect]
     Indication: JUVENILE ARTHRITIS
     Route: 058
     Dates: start: 20081110

REACTIONS (3)
  - CHEST DISCOMFORT [None]
  - DYSPNOEA [None]
  - FIBROMYALGIA [None]
